FAERS Safety Report 8322904-X (Version None)
Quarter: 2012Q2

REPORT INFORMATION
  Report Type: 
  Country: None (occurrence: None)
  Receive Date: 20120430
  Receipt Date: 20120424
  Transmission Date: 20120825
  Serious: No
  Sender: FDA-Public Use
  Company Number: US-PFIZER INC-2012062564

PATIENT
  Sex: Female
  Weight: 77.1 kg

DRUGS (9)
  1. XANAX [Concomitant]
     Indication: SLEEP DISORDER
     Dosage: UNK
  2. PREMARIN [Suspect]
     Indication: VULVOVAGINAL DRYNESS
     Dosage: 0.625 MG, 1X/DAY (DAY)
     Route: 048
     Dates: start: 20110311
  3. PREMARIN [Suspect]
     Indication: MENOPAUSE
  4. EFFEXOR XR [Concomitant]
     Dosage: UNK, 1X/DAY
  5. VENLAFAXINE [Concomitant]
     Dosage: UNK
  6. LORTAB [Concomitant]
     Indication: PAIN
     Dosage: UNK
  7. METHOCARBAMOL [Concomitant]
     Dosage: UNK
  8. LISINOPRIL [Concomitant]
     Indication: HYPERTENSION
     Dosage: UNK
  9. PREMARIN [Suspect]
     Indication: HOT FLUSH
     Dosage: UNK

REACTIONS (3)
  - HOT FLUSH [None]
  - DRUG INEFFECTIVE [None]
  - NIGHT SWEATS [None]
